FAERS Safety Report 6622895-3 (Version None)
Quarter: 2010Q1

REPORT INFORMATION
  Report Type: 
  Country: None (occurrence: None)
  Receive Date: 20100310
  Receipt Date: 20091231
  Transmission Date: 20100710
  Serious: Yes (Hospitalization)
  Sender: FDA-Public Use
  Company Number: US-BIOGENIDEC-2009BI042419

PATIENT
  Age: 50 Year
  Sex: Female
  Weight: 64 kg

DRUGS (4)
  1. AVONEX [Suspect]
     Indication: MULTIPLE SCLEROSIS
     Route: 030
     Dates: start: 19980910, end: 20030101
  2. AVONEX [Suspect]
     Route: 030
     Dates: start: 20030101
  3. AVONEX [Suspect]
     Route: 030
     Dates: start: 20090106, end: 20091101
  4. AVONEX [Suspect]
     Route: 030
     Dates: start: 20091228

REACTIONS (8)
  - BACK PAIN [None]
  - HEMIPARESIS [None]
  - INFLUENZA LIKE ILLNESS [None]
  - INTERVERTEBRAL DISC PROTRUSION [None]
  - MULTIPLE SCLEROSIS RELAPSE [None]
  - NERVOUSNESS [None]
  - OSTEOPOROSIS [None]
  - SPEECH DISORDER [None]
